FAERS Safety Report 14305614 (Version 1)
Quarter: 2017Q4

REPORT INFORMATION
  Report Type: Spontaneous
  Country: US (occurrence: US)
  Receive Date: 20171219
  Receipt Date: 20171219
  Transmission Date: 20180321
  Serious: Yes (Other)
  Sender: FDA-Public Use
  Company Number: US-OTSUKA-BMS-2016-061769

PATIENT

DRUGS (2)
  1. ABILIFY [Suspect]
     Active Substance: ARIPIPRAZOLE
     Indication: SCHIZOPHRENIA
     Dosage: 1 DF, UNK
     Route: 065
     Dates: start: 20101221, end: 20160424
  2. ABILIFY [Suspect]
     Active Substance: ARIPIPRAZOLE
     Indication: BIPOLAR DISORDER

REACTIONS (5)
  - Compulsive sexual behaviour [Recovered/Resolved]
  - Eating disorder [Recovered/Resolved]
  - Suicide attempt [Recovered/Resolved]
  - Gambling disorder [Recovered/Resolved]
  - Suicidal ideation [Recovered/Resolved]
